FAERS Safety Report 8462573-1 (Version None)
Quarter: 2012Q2

REPORT INFORMATION
  Report Type: 
  Country: None (occurrence: None)
  Receive Date: 20120620
  Receipt Date: 20120620
  Transmission Date: 20120825
  Serious: Yes (Hospitalization)
  Sender: FDA-Public Use
  Company Number: None

PATIENT
  Age: 63 Year
  Sex: Male

DRUGS (11)
  1. RANITIDINE [Concomitant]
  2. ARMODAFINIL [Concomitant]
  3. CITALOPRAM HYDROBROMIDE [Concomitant]
  4. ATENOLOL [Concomitant]
  5. ALLOPURINOL [Concomitant]
  6. PREDNISONE TAB [Concomitant]
  7. PREGABALIN [Concomitant]
  8. REVLIMID [Suspect]
  9. MORPHINE [Concomitant]
  10. REVLIMID [Suspect]
     Indication: MULTIPLE MYELOMA
     Dosage: 5 MG AND 10 MG ALTERNATING QOD BY MOUTH
     Route: 048
     Dates: start: 20081201
  11. ACYCLOVIR [Concomitant]

REACTIONS (7)
  - NEUROPATHY PERIPHERAL [None]
  - OROPHARYNGEAL PAIN [None]
  - RASH [None]
  - COUGH [None]
  - PYREXIA [None]
  - SINUS HEADACHE [None]
  - RESPIRATORY TRACT INFECTION VIRAL [None]
